FAERS Safety Report 14375639 (Version 1)
Quarter: 2018Q1

REPORT INFORMATION
  Report Type: Spontaneous
  Country: US (occurrence: US)
  Receive Date: 20180110
  Receipt Date: 20180110
  Transmission Date: 20180509
  Serious: No
  Sender: FDA-Public Use
  Company Number: None

PATIENT
  Age: 68 Year
  Sex: Male
  Weight: 60.75 kg

DRUGS (5)
  1. VOTRIENT [Suspect]
     Active Substance: PAZOPANIB HYDROCHLORIDE
     Indication: RENAL CANCER
     Route: 048
     Dates: start: 20171212, end: 20180110
  2. ACETAMINOPHEN. [Concomitant]
     Active Substance: ACETAMINOPHEN
  3. ENOXAPARIN [Concomitant]
     Active Substance: ENOXAPARIN
  4. LEVOTHYROXINE. [Concomitant]
     Active Substance: LEVOTHYROXINE
  5. DOCUSATE [Concomitant]
     Active Substance: DOCUSATE

REACTIONS (2)
  - Disease progression [None]
  - Therapy cessation [None]

NARRATIVE: CASE EVENT DATE: 20180110
